FAERS Safety Report 8384047-9 (Version None)
Quarter: 2012Q2

REPORT INFORMATION
  Report Type: 
  Country: None (occurrence: None)
  Receive Date: 20120524
  Receipt Date: 20120514
  Transmission Date: 20120825
  Serious: Yes (Other)
  Sender: FDA-Public Use
  Company Number: CH-ROCHE-1069550

PATIENT
  Sex: Female
  Weight: 44 kg

DRUGS (3)
  1. CALCIUM [Concomitant]
     Indication: OSTEOPOROSIS
  2. BONIVA [Suspect]
     Indication: OSTEOPOROSIS
     Dates: start: 20080101, end: 20090601
  3. VITAMIN D [Concomitant]
     Indication: OSTEOPOROSIS

REACTIONS (1)
  - STRESS FRACTURE [None]
